FAERS Safety Report 6102074-9 (Version None)
Quarter: 2009Q1

REPORT INFORMATION
  Report Type: 
  Country: None (occurrence: None)
  Receive Date: 20090304
  Receipt Date: 20090220
  Transmission Date: 20090719
  Serious: Yes (Other)
  Sender: FDA-Public Use
  Company Number: GB-PFIZER INC-2009174835

PATIENT

DRUGS (1)
  1. SALAZOPYRIN [Suspect]
     Dosage: 550 MG, 2X/DAY
     Route: 048
     Dates: start: 20081118, end: 20081218

REACTIONS (2)
  - HEPATITIS [None]
  - MALAISE [None]
